FAERS Safety Report 7987759-1 (Version None)
Quarter: 2011Q4

REPORT INFORMATION
  Report Type: 
  Country: None (occurrence: None)
  Receive Date: 20111216
  Receipt Date: 20110927
  Transmission Date: 20120403
  Serious: No
  Sender: FDA-Public Use
  Company Number: US-BRISTOL-MYERS SQUIBB COMPANY-15365992

PATIENT
  Age: 35 Year
  Sex: Female

DRUGS (3)
  1. PRISTIQ [Suspect]
     Dosage: DOSE INCREASED AND THEN DECREASED
  2. ABILIFY [Suspect]
     Indication: DEPRESSION
     Dates: start: 20101101
  3. REGLAN [Suspect]

REACTIONS (5)
  - FEELING JITTERY [None]
  - MYALGIA [None]
  - ANXIETY [None]
  - INSOMNIA [None]
  - THROAT TIGHTNESS [None]
